FAERS Safety Report 10029606 (Version 1)
Quarter: 2014Q1

REPORT INFORMATION
  Report Type: Spontaneous
  Country: US (occurrence: None)
  Receive Date: 20140320
  Receipt Date: 20140320
  Transmission Date: 20141002
  Serious: Yes (Hospitalization)
  Sender: FDA-Public Use
  Company Number: None

PATIENT
  Age: 83 Year
  Sex: Male

DRUGS (1)
  1. XTANDI 40MG APUS [Suspect]
     Indication: PROSTATE CANCER
     Route: 048
     Dates: start: 20131122

REACTIONS (2)
  - Fall [None]
  - Hip fracture [None]
